FAERS Safety Report 21477578 (Version 1)
Quarter: 2022Q4

REPORT INFORMATION
  Report Type: Spontaneous
  Country: NO (occurrence: NO)
  Receive Date: 20221019
  Receipt Date: 20221019
  Transmission Date: 20230113
  Serious: Yes (Other)
  Sender: FDA-Public Use
  Company Number: NO-CURRAX PHARMACEUTICALS LLC-NO-2022CUR023271

PATIENT
  Age: 39 Year
  Sex: Male

DRUGS (1)
  1. BUPROPION HYDROCHLORIDE\NALTREXONE HYDROCHLORIDE [Suspect]
     Active Substance: BUPROPION HYDROCHLORIDE\NALTREXONE HYDROCHLORIDE
     Indication: Overweight
     Dosage: 2 TABLETS AT DAYTIME AND 2 TABLETS IN THE EVENING
     Route: 065
     Dates: start: 20220414, end: 202205

REACTIONS (3)
  - Urinary retention [Recovering/Resolving]
  - Bladder catheterisation [Unknown]
  - Bladder catheter permanent [Unknown]

NARRATIVE: CASE EVENT DATE: 20220501
